FAERS Safety Report 24406969 (Version 1)
Quarter: 2024Q4

REPORT INFORMATION
  Report Type: Report from Study
  Country: US (occurrence: US)
  Receive Date: 20241007
  Receipt Date: 20241007
  Transmission Date: 20250115
  Serious: Yes (Hospitalization)
  Sender: TAIHO ONCOLOGY INC
  Company Number: US-TAIHOP-2024-009366

PATIENT
  Age: 49 Year
  Sex: Female

DRUGS (2)
  1. LONSURF [Suspect]
     Active Substance: TIPIRACIL HYDROCHLORIDE\TRIFLURIDINE
     Indication: Colon cancer
     Dosage: CYCLE UNKNOWN
     Route: 048
     Dates: start: 20231214
  2. SENOKOT-S [Concomitant]
     Active Substance: DOCUSATE SODIUM\SENNOSIDES
     Indication: Product used for unknown indication

REACTIONS (6)
  - Pyelonephritis acute [Unknown]
  - Ureteric obstruction [Unknown]
  - Nephrolithiasis [Unknown]
  - Escherichia sepsis [Unknown]
  - Acute kidney injury [Unknown]
  - Infection [Unknown]

NARRATIVE: CASE EVENT DATE: 20240912
